FAERS Safety Report 24378072 (Version 2)
Quarter: 2025Q2

REPORT INFORMATION
  Report Type: Spontaneous
  Country: US (occurrence: US)
  Receive Date: 20240930
  Receipt Date: 20250630
  Transmission Date: 20250717
  Serious: Yes (Other)
  Sender: SANOFI AVENTIS
  Company Number: US-SA-2024SA277888

PATIENT
  Sex: Male
  Weight: 81.64 kg

DRUGS (4)
  1. DUPIXENT [Suspect]
     Active Substance: DUPILUMAB
     Indication: Asthma
     Dosage: 300 MG, QOW
     Route: 058
  2. DUPIXENT [Suspect]
     Active Substance: DUPILUMAB
     Indication: Rheumatoid arthritis
  3. HUMIRA [Suspect]
     Active Substance: ADALIMUMAB
     Indication: Rheumatoid arthritis
  4. HADLIMA [Concomitant]
     Active Substance: ADALIMUMAB-BWWD

REACTIONS (5)
  - Rheumatoid arthritis [Unknown]
  - Peripheral swelling [Unknown]
  - Gait disturbance [Unknown]
  - Bedridden [Unknown]
  - Product use in unapproved indication [Unknown]
